FAERS Safety Report 10970939 (Version 3)
Quarter: 2015Q2

REPORT INFORMATION
  Report Type: Spontaneous
  Country: US (occurrence: US)
  Receive Date: 20150331
  Receipt Date: 20150527
  Transmission Date: 20150821
  Serious: Yes (Death, Hospitalization, Other)
  Sender: FDA-Public Use
  Company Number: US-009507513-1503USA013252

PATIENT
  Age: 69 Year
  Sex: Male

DRUGS (3)
  1. DEXAMETHASONE. [Suspect]
     Active Substance: DEXAMETHASONE
     Indication: PLASMA CELL MYELOMA
     Dosage: 10 MG, D1, 4, 8, 11 EACH CYCLE(10 MG)
     Route: 042
     Dates: start: 20100712, end: 20110110
  2. MELPHALAN [Suspect]
     Active Substance: MELPHALAN
     Indication: PLASMA CELL MYELOMA
     Dosage: 100 MG/MM2 24HOUR/2 DAYS
     Route: 042
     Dates: start: 20110305, end: 20110307
  3. VELCADE [Suspect]
     Active Substance: BORTEZOMIB
     Indication: PLASMA CELL MYELOMA
     Dosage: 3 MG, D1, 4, 8, 11 EACH CYCLE (3 MG)
     Route: 042
     Dates: start: 20100712, end: 20110110

REACTIONS (11)
  - Contusion [Not Recovered/Not Resolved]
  - Blood culture positive [Unknown]
  - Azotaemia [Recovered/Resolved]
  - Autoimmune haemolytic anaemia [Fatal]
  - Myelodysplastic syndrome [Unknown]
  - Acute kidney injury [Unknown]
  - Aplasia pure red cell [Fatal]
  - Pancytopenia [Fatal]
  - Refractory cytopenia with unilineage dysplasia [Unknown]
  - Adult T-cell lymphoma/leukaemia [Recovered/Resolved]
  - Fall [Not Recovered/Not Resolved]

NARRATIVE: CASE EVENT DATE: 201103
